FAERS Safety Report 12316611 (Version 1)
Quarter: 2016Q2

REPORT INFORMATION
  Report Type: Spontaneous
  Country: US (occurrence: US)
  Receive Date: 20160429
  Receipt Date: 20160429
  Transmission Date: 20160815
  Serious: Yes (Other)
  Sender: FDA-Public Use
  Company Number: US-ASTRAZENECA-2016SE45431

PATIENT
  Age: 65 Year
  Sex: Female
  Weight: 53.1 kg

DRUGS (7)
  1. SUTENT [Suspect]
     Active Substance: SUNITINIB MALATE
     Dosage: 2 WEEKS ON/1 WEEK OFF
     Route: 065
     Dates: start: 20160120
  2. PRILOSEC [Suspect]
     Active Substance: OMEPRAZOLE MAGNESIUM
     Route: 065
  3. METAMUCIL [Concomitant]
     Active Substance: PLANTAGO SEED
  4. IRBESARTAN. [Concomitant]
     Active Substance: IRBESARTAN
  5. SYNTHROID [Concomitant]
     Active Substance: LEVOTHYROXINE SODIUM
  6. MAGNESIUM [Concomitant]
     Active Substance: MAGNESIUM
  7. POTASSIUM [Concomitant]
     Active Substance: POTASSIUM

REACTIONS (4)
  - Metastases to bone [Unknown]
  - Abdominal pain [Unknown]
  - Metastases to liver [Unknown]
  - Chest pain [Unknown]
